FAERS Safety Report 7650048-9 (Version None)
Quarter: 2011Q3

REPORT INFORMATION
  Report Type: 
  Country: None (occurrence: None)
  Receive Date: 20110802
  Receipt Date: 20110802
  Transmission Date: 20111222
  Serious: Yes (Death, Life-Threatening, Hospitalization, Disabling, Congenital Anomaly, Other)
  Sender: FDA-Public Use
  Company Number: None

PATIENT
  Age: 78 Year
  Sex: Male
  Weight: 127 kg

DRUGS (1)
  1. SIMVASTATIN-GENERIC- [Suspect]
     Indication: BLOOD CHOLESTEROL
     Route: 002
     Dates: start: 20060101, end: 20110601

REACTIONS (10)
  - RENAL FAILURE [None]
  - HYPOAESTHESIA [None]
  - AMNESIA [None]
  - SWOLLEN TONGUE [None]
  - FATIGUE [None]
  - ASTHENIA [None]
  - DISCOMFORT [None]
  - PARAESTHESIA [None]
  - MYALGIA [None]
  - ARTHRALGIA [None]
